FAERS Safety Report 9375896 (Version 2)
Quarter: 2013Q4

REPORT INFORMATION
  Report Type: Spontaneous
  Country: US (occurrence: US)
  Receive Date: 20130628
  Receipt Date: 20131213
  Transmission Date: 20140711
  Serious: Yes (Hospitalization)
  Sender: FDA-Public Use
  Company Number: US-B.I. PHARMACEUTICALS,INC./RIDGEFIELD-2013-BI-18568BP

PATIENT
  Age: 72 Year
  Sex: Female
  Weight: 102.06 kg

DRUGS (18)
  1. PRADAXA [Suspect]
     Indication: ANTICOAGULANT THERAPY
     Dosage: 150 MG
     Route: 048
     Dates: start: 20110920, end: 20111119
  2. PRADAXA [Suspect]
     Indication: ATRIAL FIBRILLATION
  3. CLINDAMYCIN [Concomitant]
     Dosage: 900 MG
  4. INSULIN N [Concomitant]
     Dosage: 150 U
     Route: 058
  5. NOVOLIN INSULIN [Concomitant]
     Dosage: 45 U
     Route: 058
  6. CALCIUM [Concomitant]
     Dosage: 500 MG
  7. MULTIVITAMIN [Concomitant]
  8. BUMEX [Concomitant]
     Dosage: 4 MG
  9. BENAZEPRIL [Concomitant]
     Dosage: 20 MG
  10. LEVOTHYROXINE [Concomitant]
     Dosage: 112 MCG
  11. BYSTOLIC [Concomitant]
     Dosage: 10 MG
  12. CITALOPRAM [Concomitant]
     Dosage: 20 MG
  13. PHARMANAC [Concomitant]
     Dosage: 300 MG
  14. ZINC [Concomitant]
     Dosage: 50 MG
  15. VITAMIN C [Concomitant]
     Dosage: 500 MG
  16. VITAMIN D [Concomitant]
     Dosage: 1000 MG
  17. CLODERM CREAM [Concomitant]
  18. ALEVE [Concomitant]
     Dosage: 400 MG

REACTIONS (4)
  - Gastrointestinal haemorrhage [Recovered/Resolved]
  - Haemorrhagic anaemia [Unknown]
  - Coagulopathy [Recovered/Resolved]
  - Renal failure acute [Unknown]
